FAERS Safety Report 25500616 (Version 1)
Quarter: 2025Q2

REPORT INFORMATION
  Report Type: Spontaneous
  Country: US (occurrence: None)
  Receive Date: 20250629
  Receipt Date: 20250629
  Transmission Date: 20250716
  Serious: No
  Sender: FDA-CTU
  Company Number: None

PATIENT
  Age: 79 Year
  Sex: Male

DRUGS (3)
  1. ABIRATERONE [Suspect]
     Active Substance: ABIRATERONE
     Dosage: FREQUENCY : TWICE A DAY;?
     Route: 048
     Dates: start: 20250416, end: 20250515
  2. PREDNISONE [Suspect]
     Active Substance: PREDNISONE
  3. ROPINIROLE [Suspect]
     Active Substance: ROPINIROLE

REACTIONS (6)
  - Hallucination, visual [None]
  - Fatigue [None]
  - Brain fog [None]
  - Headache [None]
  - Blood pressure increased [None]
  - Therapy cessation [None]

NARRATIVE: CASE EVENT DATE: 20250530
